FAERS Safety Report 7870180-4 (Version None)
Quarter: 2011Q4

REPORT INFORMATION
  Report Type: 
  Country: None (occurrence: None)
  Receive Date: 20111028
  Receipt Date: 20110114
  Transmission Date: 20120403
  Serious: No
  Sender: FDA-Public Use
  Company Number: US-AMGEN-USASP2011002500

PATIENT
  Sex: Female

DRUGS (1)
  1. ENBREL [Suspect]
     Indication: PSORIATIC ARTHROPATHY
     Dosage: 50 MG, QWK
     Dates: start: 20070101

REACTIONS (6)
  - ERYTHEMA OF EYELID [None]
  - EYELID OEDEMA [None]
  - DRY SKIN [None]
  - INJECTION SITE REACTION [None]
  - EYELID EXFOLIATION [None]
  - EYELIDS PRURITUS [None]
